FAERS Safety Report 16583670 (Version 1)
Quarter: 2019Q3

REPORT INFORMATION
  Report Type: Spontaneous
  Country: US (occurrence: US)
  Receive Date: 20190716
  Receipt Date: 20190716
  Transmission Date: 20191004
  Serious: Yes (Life-Threatening, Disabling, Other)
  Sender: FDA-Public Use
  Company Number: None

PATIENT
  Sex: Female
  Weight: 56.25 kg

DRUGS (2)
  1. FIORICET [Concomitant]
     Active Substance: ACETAMINOPHEN\BUTALBITAL\CAFFEINE
  2. ZOLPIDEM [Suspect]
     Active Substance: ZOLPIDEM TARTRATE
     Indication: INSOMNIA
     Route: 048
     Dates: start: 20130101, end: 20190701

REACTIONS (8)
  - Incorrect dose administered [None]
  - Screaming [None]
  - Behavioural induced insufficient sleep syndrome [None]
  - Sleep-related eating disorder [None]
  - Compulsive shopping [None]
  - Foot fracture [None]
  - Abnormal sleep-related event [None]
  - Amnesia [None]
